FAERS Safety Report 23758250 (Version 1)
Quarter: 2024Q2

REPORT INFORMATION
  Report Type: Report from Study
  Country: US (occurrence: US)
  Receive Date: 20240418
  Receipt Date: 20240418
  Transmission Date: 20240715
  Serious: Yes (Other)
  Sender: FDA-Public Use
  Company Number: US-GUERBET / LLC-US-20240069

PATIENT
  Age: 4 Decade

DRUGS (3)
  1. ETHIODIZED OIL [Suspect]
     Active Substance: ETHIODIZED OIL
     Indication: Therapeutic embolisation
     Dosage: ETHIODIZED OIL WITH N-BUTYL-CYANOACRYLATE (N-BCA) AT A RATIO OF 1:2.
     Route: 013
  2. ENBUCRILATE [Suspect]
     Active Substance: ENBUCRILATE
     Indication: Therapeutic embolisation
     Dosage: ETHIODIZED OIL WITH N-BUTYL-CYANOACRYLATE (N-BCA) AT A RATIO OF 1:2.
     Route: 013
  3. DEXTROSE [Concomitant]
     Active Substance: DEXTROSE\DEXTROSE MONOHYDRATE
     Indication: Catheter management
     Dosage: APPROXIMATIVELY 10 ML

REACTIONS (2)
  - Cerebral infarction [Unknown]
  - Product use in unapproved indication [Unknown]
